FAERS Safety Report 9016196 (Version 1)
Quarter: 2013Q1

REPORT INFORMATION
  Report Type: Spontaneous
  Country: FR (occurrence: FR)
  Receive Date: 20130116
  Receipt Date: 20130116
  Transmission Date: 20140127
  Serious: Yes (Hospitalization)
  Sender: FDA-Public Use
  Company Number: FR-B.I. PHARMACEUTICALS,INC./RIDGEFIELD-2013-FF-00081FF

PATIENT
  Sex: Male

DRUGS (8)
  1. PRADAXA [Suspect]
     Indication: ATRIAL FIBRILLATION
     Route: 048
     Dates: start: 20120925, end: 20121120
  2. AMLOR [Suspect]
     Route: 048
     Dates: end: 20121120
  3. LASILIX [Suspect]
     Route: 048
     Dates: end: 20121120
  4. EUPRESSYL [Suspect]
     Route: 048
     Dates: end: 20121120
  5. ZYLORIC [Concomitant]
     Route: 048
  6. AMIODARONE [Concomitant]
     Indication: ATRIAL FIBRILLATION
     Route: 048
  7. BISOPROLOL [Concomitant]
     Indication: ATRIAL FIBRILLATION
     Route: 048
  8. DIFFU K [Concomitant]
     Route: 048

REACTIONS (1)
  - Renal failure acute [Not Recovered/Not Resolved]
